FAERS Safety Report 6814638-5 (Version None)
Quarter: 2010Q3

REPORT INFORMATION
  Report Type: 
  Country: None (occurrence: None)
  Receive Date: 20100702
  Receipt Date: 20100623
  Transmission Date: 20110219
  Serious: Yes (Death)
  Sender: FDA-Public Use
  Company Number: ES-PFIZER INC-2010078078

PATIENT
  Age: 18 Year
  Sex: Female

DRUGS (5)
  1. ZYVOXID [Suspect]
     Dosage: UNK
     Dates: start: 20100614
  2. TYGACIL [Suspect]
     Indication: PNEUMONIA
     Dosage: 50 MG, 2X/DAY
     Dates: start: 20100608, end: 20100614
  3. COLISTIN [Concomitant]
     Indication: PNEUMONIA
     Dosage: UNK
     Dates: start: 20100608
  4. CLOXACILLIN [Concomitant]
     Indication: PNEUMONIA
     Dosage: UNK
     Dates: end: 20100608
  5. PENTOTHAL [Concomitant]
     Indication: INTRACRANIAL PRESSURE INCREASED
     Dosage: PERFUSION

REACTIONS (3)
  - DRUG INEFFECTIVE [None]
  - SEPTIC SHOCK [None]
  - STAPHYLOCOCCAL INFECTION [None]
